FAERS Safety Report 10168928 (Version 1)
Quarter: 2014Q2

REPORT INFORMATION
  Report Type: Spontaneous
  Country: FR (occurrence: FR)
  Receive Date: 20140513
  Receipt Date: 20140513
  Transmission Date: 20141212
  Serious: Yes (Other)
  Sender: FDA-Public Use
  Company Number: FR-JNJFOC-20140504368

PATIENT
  Age: 67 Year
  Sex: Female

DRUGS (6)
  1. XARELTO [Suspect]
     Indication: PRODUCT USED FOR UNKNOWN INDICATION
     Route: 048
     Dates: start: 20140319, end: 20140319
  2. LOVENOX [Suspect]
     Indication: PRODUCT USED FOR UNKNOWN INDICATION
     Route: 058
     Dates: start: 20140318, end: 20140318
  3. DOLPRONE [Concomitant]
     Route: 048
     Dates: start: 20140318
  4. KARDEGIC [Concomitant]
     Route: 048
  5. ALDACTONE A [Concomitant]
     Route: 048
  6. TRANDATE [Concomitant]
     Route: 048

REACTIONS (2)
  - Deep vein thrombosis [Recovered/Resolved]
  - Drug ineffective [Recovered/Resolved]
